FAERS Safety Report 18047455 (Version 2)
Quarter: 2020Q3

REPORT INFORMATION
  Report Type: Spontaneous
  Country: US (occurrence: US)
  Receive Date: 20200721
  Receipt Date: 20200804
  Transmission Date: 20201103
  Serious: Yes (Other)
  Sender: FDA-Public Use
  Company Number: US-AUROBINDO-AUR-APL-2020-035577

PATIENT
  Sex: Female

DRUGS (1)
  1. QUETIAPINE. [Suspect]
     Active Substance: QUETIAPINE
     Indication: BIPOLAR I DISORDER
     Dosage: 600 MILLIGRAM, ONCE A DAY AT NIGHT
     Route: 065

REACTIONS (6)
  - Feeling abnormal [Recovering/Resolving]
  - Sedation [Recovering/Resolving]
  - Fall [Recovering/Resolving]
  - Somnolence [Recovering/Resolving]
  - Hypersomnia [Recovering/Resolving]
  - Depression suicidal [Recovering/Resolving]
